FAERS Safety Report 5334471-3 (Version None)
Quarter: 2007Q2

REPORT INFORMATION
  Report Type: 
  Country: None (occurrence: None)
  Receive Date: 20070308
  Receipt Date: 20061127
  Transmission Date: 20071010
  Serious: No
  Sender: FDA-Public Use
  Company Number: 2006-BP-13741BP

PATIENT
  Age: 80 Year
  Sex: Male
  Weight: 62.6 kg

DRUGS (12)
  1. SPIRIVA [Suspect]
     Indication: CHRONIC OBSTRUCTIVE PULMONARY DISEASE
     Dosage: 18 MCG (18 MCG, 1 CAP DAILY), IH
     Route: 055
     Dates: start: 20041101, end: 20061122
  2. LOTREL [Concomitant]
  3. ADVAIR (SERETIDE) [Concomitant]
  4. ISOSORBIDE MONONITRATE [Concomitant]
  5. ALLOPURINOL [Concomitant]
  6. TOPROL-XL [Concomitant]
  7. LASIX [Concomitant]
  8. POTASSIUM ER (POTASSIUM) [Concomitant]
  9. DIGOXIN [Concomitant]
  10. COUMADIN [Concomitant]
  11. PREVACID [Concomitant]
  12. PRAVASTATIN [Concomitant]

REACTIONS (3)
  - ABDOMINAL PAIN UPPER [None]
  - CATARACT [None]
  - VISUAL ACUITY REDUCED [None]
